FAERS Safety Report 6614230-1 (Version None)
Quarter: 2010Q1

REPORT INFORMATION
  Report Type: 
  Country: None (occurrence: None)
  Receive Date: 20100304
  Receipt Date: 20100218
  Transmission Date: 20100710
  Serious: Yes (Hospitalization, Other)
  Sender: FDA-Public Use
  Company Number: IE-ELI_LILLY_AND_COMPANY-IE201001005027

PATIENT
  Sex: Female

DRUGS (1)
  1. FORTEO [Suspect]
     Dosage: 20 UG, UNKNOWN
     Route: 058
     Dates: start: 20090401, end: 20091201

REACTIONS (2)
  - ATRIAL FIBRILLATION [None]
  - PALPITATIONS [None]
